FAERS Safety Report 17815141 (Version 1)
Quarter: 2020Q2

REPORT INFORMATION
  Report Type: Spontaneous
  Country: IR (occurrence: IR)
  Receive Date: 20200522
  Receipt Date: 20200522
  Transmission Date: 20200714
  Serious: Yes (Other)
  Sender: FDA-Public Use
  Company Number: NVSC2020IR124805

PATIENT
  Age: 31 Year
  Sex: Male

DRUGS (2)
  1. MYCOPHENOLATE MOFETIL. [Concomitant]
     Active Substance: MYCOPHENOLATE MOFETIL
     Indication: PRODUCT USED FOR UNKNOWN INDICATION
     Dosage: 2 G, QD, FOR 18 YEARS
     Route: 048
  2. CYCLOSPORINE. [Suspect]
     Active Substance: CYCLOSPORINE
     Indication: PRODUCT USED FOR UNKNOWN INDICATION
     Dosage: 5 MG/KG, QD, FOR 18 YEARS
     Route: 065

REACTIONS (7)
  - Visual impairment [Recovering/Resolving]
  - Postictal state [Recovering/Resolving]
  - Blood urea increased [Recovering/Resolving]
  - Lymphadenopathy [Recovering/Resolving]
  - Neurotoxicity [Recovering/Resolving]
  - Generalised tonic-clonic seizure [Recovering/Resolving]
  - Pyrexia [Recovering/Resolving]
